FAERS Safety Report 12982546 (Version 2)
Quarter: 2016Q4

REPORT INFORMATION
  Report Type: Spontaneous
  Country: BE (occurrence: BE)
  Receive Date: 20161129
  Receipt Date: 20161229
  Transmission Date: 20170207
  Serious: Yes (Life-Threatening, Hospitalization, Disabling, Other)
  Sender: FDA-Public Use
  Company Number: BE-PFIZER INC-2016550446

PATIENT
  Age: 68 Year
  Sex: Male
  Weight: 80 kg

DRUGS (3)
  1. RAMIPRIL. [Suspect]
     Active Substance: RAMIPRIL
     Dosage: 2.5 MG, UNK
     Route: 065
  2. ELIQUIS [Suspect]
     Active Substance: APIXABAN
     Indication: CEREBROVASCULAR ACCIDENT PROPHYLAXIS
     Dosage: 5 MG, 2X/DAY
     Route: 048
     Dates: start: 20161110, end: 20161116
  3. EMCONCOR [Suspect]
     Active Substance: BISOPROLOL FUMARATE
     Indication: ATRIAL FIBRILLATION
     Dosage: 5 MG, QD
     Route: 048
     Dates: start: 20161109

REACTIONS (4)
  - Cardiomyopathy [Unknown]
  - Tachycardia [Unknown]
  - Haemorrhagic stroke [Not Recovered/Not Resolved]
  - Ischaemic stroke [Not Recovered/Not Resolved]

NARRATIVE: CASE EVENT DATE: 20161112
